FAERS Safety Report 9768250 (Version 1)
Quarter: 2013Q4

REPORT INFORMATION
  Report Type: Spontaneous
  Country: DE (occurrence: ES)
  Receive Date: 20131217
  Receipt Date: 20131217
  Transmission Date: 20140711
  Serious: Yes (Other)
  Sender: FDA-Public Use
  Company Number: ES-FRI-1000052262

PATIENT
  Age: 77 Year
  Sex: Female

DRUGS (1)
  1. MEMANTINE [Suspect]
     Dosage: 20 MG
     Dates: start: 201306, end: 201307

REACTIONS (2)
  - Diplopia [Recovered/Resolved]
  - Conduct disorder [Recovered/Resolved]
